FAERS Safety Report 9809254 (Version 1)
Quarter: 2014Q1

REPORT INFORMATION
  Report Type: Spontaneous
  Country: US (occurrence: US)
  Receive Date: 20140110
  Receipt Date: 20140110
  Transmission Date: 20141002
  Serious: Yes (Death)
  Sender: FDA-Public Use
  Company Number: US-PFIZER INC-2014005248

PATIENT
  Age: 61 Year
  Sex: Female

DRUGS (4)
  1. OXYCODONE HYDROCHLORIDE [Suspect]
     Dosage: UNK
  2. ALPRAZOLAM [Suspect]
     Dosage: UNK
  3. PRIMIDONE [Suspect]
     Dosage: UNK
  4. HYDROMORPHONE [Suspect]
     Dosage: UNK

REACTIONS (1)
  - Completed suicide [Fatal]
